FAERS Safety Report 11507810 (Version 1)
Quarter: 2015Q3

REPORT INFORMATION
  Report Type: Spontaneous
  Country: US (occurrence: None)
  Receive Date: 20150914
  Receipt Date: 20150914
  Transmission Date: 20151125
  Serious: No
  Sender: FDA-Public Use
  Company Number: None

PATIENT
  Age: 34 Year
  Sex: Male

DRUGS (2)
  1. ENTYVIO [Suspect]
     Active Substance: VEDOLIZUMAB
     Indication: COLITIS ULCERATIVE
     Route: 042
  2. ENTYVIO [Suspect]
     Active Substance: VEDOLIZUMAB
     Indication: CROHN^S DISEASE
     Route: 042

REACTIONS (12)
  - Musculoskeletal disorder [None]
  - Sinusitis [None]
  - Nasopharyngitis [None]
  - Arthralgia [None]
  - Burns second degree [None]
  - Nervous system disorder [None]
  - Joint crepitation [None]
  - Thinking abnormal [None]
  - Amnesia [None]
  - Fatigue [None]
  - Visual impairment [None]
  - Asthenia [None]
